FAERS Safety Report 9004292 (Version 1)
Quarter: 2013Q1

REPORT INFORMATION
  Report Type: Spontaneous
  Country: US (occurrence: US)
  Receive Date: 20130108
  Receipt Date: 20130108
  Transmission Date: 20140127
  Serious: Yes (Death)
  Sender: FDA-Public Use
  Company Number: US-BAYER-2013-001909

PATIENT
  Age: 45 Year
  Sex: Male

DRUGS (8)
  1. DIPHENHYDRAMINE HYDROCHLORIDE [Suspect]
  2. CARBON MONOXIDE [Suspect]
  3. ACETAMINOPHEN [Suspect]
  4. MECLIZINE [Suspect]
  5. ALPRAZOLAM [Suspect]
  6. VENLAFAXINE [Suspect]
  7. TOPIRAMATE [Suspect]
  8. BUPROPION [Suspect]

REACTIONS (1)
  - Toxicity to various agents [Fatal]
